FAERS Safety Report 5755564-2 (Version None)
Quarter: 2008Q2

REPORT INFORMATION
  Report Type: 
  Country: None (occurrence: None)
  Receive Date: 20080602
  Receipt Date: 20080530
  Transmission Date: 20081010
  Serious: Yes (Death, Other)
  Sender: FDA-Public Use
  Company Number: FI-BRISTOL-MYERS SQUIBB COMPANY-14205892

PATIENT

DRUGS (1)
  1. PROCAINAMIDE HCL [Suspect]
     Indication: ARRHYTHMIA PROPHYLAXIS

REACTIONS (2)
  - BRUGADA SYNDROME [None]
  - SUDDEN CARDIAC DEATH [None]
